FAERS Safety Report 18438162 (Version 1)
Quarter: 2020Q4

REPORT INFORMATION
  Report Type: Spontaneous
  Country: US (occurrence: US)
  Receive Date: 20201028
  Receipt Date: 20201028
  Transmission Date: 20210114
  Serious: Yes (Hospitalization, Other)
  Sender: FDA-Public Use
  Company Number: US-PURDUE-USA-2020-0169108

PATIENT

DRUGS (1)
  1. OXYCONTIN [Suspect]
     Active Substance: OXYCODONE HYDROCHLORIDE
     Indication: PAIN
     Dosage: UNK
     Route: 048

REACTIONS (18)
  - Seizure [Unknown]
  - Hepatic failure [Unknown]
  - Obstructive airways disorder [Unknown]
  - Memory impairment [Unknown]
  - Psychiatric symptom [Unknown]
  - Abnormal behaviour [Unknown]
  - Pain [Unknown]
  - Foaming at mouth [Unknown]
  - Asthma [Unknown]
  - Drug dependence [Unknown]
  - Renal failure [Unknown]
  - Accidental overdose [Unknown]
  - Mental impairment [Unknown]
  - Loss of consciousness [Unknown]
  - Respiratory disorder [Unknown]
  - Respiratory failure [Unknown]
  - Cognitive disorder [Unknown]
  - Emotional distress [Unknown]
